FAERS Safety Report 7775832-2 (Version None)
Quarter: 2011Q3

REPORT INFORMATION
  Report Type: 
  Country: None (occurrence: None)
  Receive Date: 20110923
  Receipt Date: 20110914
  Transmission Date: 20111222
  Serious: Yes (Hospitalization, Other)
  Sender: FDA-Public Use
  Company Number: PHEH2011US00448

PATIENT
  Sex: Female

DRUGS (22)
  1. DIOVAN [Concomitant]
     Dosage: 80 MG, DAILY
  2. DIGOXIN [Concomitant]
  3. ZOMETA [Suspect]
     Indication: BREAST CANCER METASTATIC
     Dosage: 4 MG, QW
     Route: 042
     Dates: start: 20020701, end: 20070201
  4. OXYCODONE [Concomitant]
  5. COREG [Concomitant]
     Dosage: 25 MG, BID
  6. ARANESP [Concomitant]
  7. PERIDEX [Concomitant]
  8. VICODIN [Concomitant]
  9. SPIRONOLACTONE [Concomitant]
  10. MORPHINE [Concomitant]
  11. ACCUPRIL [Concomitant]
  12. LANOXIN [Concomitant]
  13. ALDACTONE [Concomitant]
     Dosage: 25 MG, QD
     Route: 048
  14. ASPIRIN [Concomitant]
  15. ASPIRIN [Concomitant]
     Dosage: 325 MG, QD
  16. PERCOCET [Concomitant]
  17. PENICILLIN [Concomitant]
  18. QUINAPRIL HCL [Concomitant]
  19. PENICILLIN VK [Concomitant]
  20. BENICAR [Concomitant]
  21. SIMVASTATIN [Concomitant]
  22. LIPITOR [Concomitant]
     Dosage: 20 MG, QD
     Route: 048

REACTIONS (52)
  - IMPAIRED WORK ABILITY [None]
  - AORTIC ANEURYSM [None]
  - CORONARY ARTERY DISEASE [None]
  - TRICUSPID VALVE INCOMPETENCE [None]
  - SCIATICA [None]
  - PALPITATIONS [None]
  - HYPERLIPIDAEMIA [None]
  - PERIPHERAL VASCULAR DISORDER [None]
  - ANAEMIA [None]
  - RADICULOPATHY [None]
  - OSTEOARTHRITIS [None]
  - FEMORAL ARTERY OCCLUSION [None]
  - GROIN PAIN [None]
  - OSTEOLYSIS [None]
  - SINUS DISORDER [None]
  - CARDIAC MURMUR [None]
  - OSTEONECROSIS OF JAW [None]
  - DISABILITY [None]
  - ANXIETY [None]
  - DECREASED INTEREST [None]
  - MITRAL VALVE INCOMPETENCE [None]
  - HEADACHE [None]
  - MUSCULOSKELETAL PAIN [None]
  - ATRIOVENTRICULAR BLOCK FIRST DEGREE [None]
  - CARDIAC FAILURE CONGESTIVE [None]
  - ARTERIOSCLEROSIS [None]
  - INTERVERTEBRAL DISC DEGENERATION [None]
  - BACK PAIN [None]
  - DYSPNOEA [None]
  - CERUMEN IMPACTION [None]
  - FACIAL PAIN [None]
  - URINARY TRACT INFECTION [None]
  - PATHOLOGICAL FRACTURE [None]
  - PAIN [None]
  - HYPERTENSION [None]
  - CHRONIC OBSTRUCTIVE PULMONARY DISEASE [None]
  - RHEUMATIC FEVER [None]
  - METASTASES TO BONE [None]
  - CATARACT [None]
  - LEFT VENTRICULAR DYSFUNCTION [None]
  - HEPATIC NEOPLASM [None]
  - C-REACTIVE PROTEIN INCREASED [None]
  - DEFORMITY [None]
  - PAIN IN JAW [None]
  - ANGINA UNSTABLE [None]
  - LUNG NEOPLASM [None]
  - CARDIOMYOPATHY [None]
  - PAIN IN EXTREMITY [None]
  - EXPOSED BONE IN JAW [None]
  - AORTIC ARTERIOSCLEROSIS [None]
  - EAR PAIN [None]
  - HYPOTENSION [None]
